FAERS Safety Report 9976958 (Version 1)
Quarter: 2014Q1

REPORT INFORMATION
  Report Type: Spontaneous
  Country: US (occurrence: US)
  Receive Date: 20140306
  Receipt Date: 20140306
  Transmission Date: 20141002
  Serious: No
  Sender: FDA-Public Use
  Company Number: US-ABBVIE-13P-163-1167782-00

PATIENT
  Sex: Male
  Weight: 116.22 kg

DRUGS (10)
  1. HUMIRA [Suspect]
     Indication: SPONDYLITIS
     Route: 058
     Dates: start: 201006
  2. HUMIRA [Suspect]
     Indication: LEUKOCYTE ANTIGEN B-27 POSITIVE
  3. SHINGLES VACCINE [Suspect]
     Indication: PRODUCT USED FOR UNKNOWN INDICATION
     Dates: start: 2013, end: 2013
  4. LOSARTAN [Concomitant]
     Indication: HYPERTENSION
  5. ATORVASTATIN [Concomitant]
     Indication: BLOOD CHOLESTEROL INCREASED
  6. SULFASALAZINE [Concomitant]
     Indication: SPONDYLITIS
  7. SULFASALAZINE [Concomitant]
     Indication: LEUKOCYTE ANTIGEN B-27 POSITIVE
  8. CYMBALTA [Concomitant]
     Indication: BIPOLAR DISORDER
  9. ETODOLAC [Concomitant]
     Indication: SPONDYLITIS
  10. ETODOLAC [Concomitant]
     Indication: LEUKOCYTE ANTIGEN B-27 POSITIVE

REACTIONS (1)
  - Iritis [Not Recovered/Not Resolved]
